FAERS Safety Report 5758768-8 (Version None)
Quarter: 2008Q2

REPORT INFORMATION
  Report Type: 
  Country: None (occurrence: None)
  Receive Date: 20080602
  Receipt Date: 20080520
  Transmission Date: 20081010
  Serious: Yes (Hospitalization, Disabling)
  Sender: FDA-Public Use
  Company Number: 2008013740

PATIENT
  Age: 23 Month
  Sex: Male

DRUGS (2)
  1. CETIRIZINE HCL [Suspect]
     Indication: DERMATITIS ATOPIC
     Dosage: 10 GTT, ORAL
     Route: 048
     Dates: start: 20071121, end: 20080103
  2. CETIRIZINE HCL [Suspect]
     Indication: DERMATITIS ATOPIC
     Dosage: 10 GTT, ORAL
     Route: 048
     Dates: start: 20080307, end: 20080314

REACTIONS (10)
  - CONDITION AGGRAVATED [None]
  - DERMATITIS ATOPIC [None]
  - DEVELOPMENTAL DELAY [None]
  - ENCEPHALITIS [None]
  - GAIT DISTURBANCE [None]
  - MOVEMENT DISORDER [None]
  - MUSCULAR WEAKNESS [None]
  - NERVOUS SYSTEM DISORDER [None]
  - NEUROLOGICAL SYMPTOM [None]
  - SKIN LESION [None]
